FAERS Safety Report 8998532 (Version 1)
Quarter: 2013Q1

REPORT INFORMATION
  Report Type: Report from Study
  Country: AU (occurrence: AU)
  Receive Date: 20130103
  Receipt Date: 20130103
  Transmission Date: 20140127
  Serious: Yes (Hospitalization)
  Sender: FDA-Public Use
  Company Number: AU-TEVA-378430USA

PATIENT
  Age: 76 Year
  Sex: Female
  Weight: 85 kg

DRUGS (7)
  1. TREANDA [Suspect]
     Indication: B-CELL LYMPHOMA
     Dosage: 5.49 MILLIGRAM DAILY;
     Route: 042
     Dates: start: 20120308
  2. OBINUTUZUMAB [Suspect]
     Indication: B-CELL LYMPHOMA
     Dosage: 8.9286 MILLIGRAM DAILY;
     Route: 042
  3. PREDNISOLON [Concomitant]
     Dates: start: 20120308
  4. ENOXAPARIN SODIUM [Concomitant]
     Dates: start: 20120314, end: 20120713
  5. ONDANSETRON [Concomitant]
     Dates: start: 20120308
  6. SLOW-K [Concomitant]
     Dates: start: 20120702
  7. WARFARIN [Concomitant]
     Dates: start: 20120503

REACTIONS (1)
  - International normalised ratio increased [Recovered/Resolved]
